FAERS Safety Report 12375892 (Version 2)
Quarter: 2016Q2

REPORT INFORMATION
  Report Type: Spontaneous
  Country: JP (occurrence: JP)
  Receive Date: 20160517
  Receipt Date: 20160525
  Transmission Date: 20160815
  Serious: Yes (Other)
  Sender: FDA-Public Use
  Company Number: JP-GLAXOSMITHKLINE-JP2016JPN066852

PATIENT
  Age: 72 Year
  Sex: Male

DRUGS (3)
  1. AVOLVE [Suspect]
     Active Substance: DUTASTERIDE
     Indication: BENIGN PROSTATIC HYPERPLASIA
     Dosage: 0.5 MG, QD
     Route: 048
     Dates: start: 20160413, end: 201604
  2. ZALUTIA [Concomitant]
     Active Substance: TADALAFIL
     Dosage: UNK
  3. URIEF [Concomitant]
     Active Substance: SILODOSIN
     Dosage: 4 MG, BID
     Dates: start: 20160316

REACTIONS (2)
  - Prostate cancer [Unknown]
  - Dysuria [Recovered/Resolved]

NARRATIVE: CASE EVENT DATE: 20160415
